FAERS Safety Report 5657537-7 (Version None)
Quarter: 2008Q1

REPORT INFORMATION
  Report Type: 
  Country: None (occurrence: None)
  Receive Date: 20080307
  Receipt Date: 20080307
  Transmission Date: 20080703
  Serious: Yes (Life-Threatening)
  Sender: FDA-Public Use
  Company Number: None

PATIENT
  Age: 68 Year
  Sex: Female
  Weight: 90 kg

DRUGS (17)
  1. XIGRIS [Suspect]
     Indication: SEPSIS
     Dosage: 10.8 ML EVERY HOUR IV DRIP
     Route: 041
     Dates: start: 20080217, end: 20080219
  2. ZOSYN [Concomitant]
  3. FLAGYL [Concomitant]
  4. PROTONIX [Concomitant]
  5. FENTANYL TRANSDERMAL SYSTEM [Concomitant]
  6. LEVOPHED [Concomitant]
  7. CLINDAMYCIN HCL [Concomitant]
  8. LEVAQUIN [Concomitant]
  9. HYDROCORTISONE [Concomitant]
  10. PROPOFOL [Concomitant]
  11. ADENOSINE [Concomitant]
  12. NEOSYNEPHRINE [Concomitant]
  13. CORDARONE [Concomitant]
  14. SODIUM BICARBONATE [Concomitant]
  15. AZTREONAM [Concomitant]
  16. DAPTOMYCIN [Concomitant]
  17. POTASSIUM CHLORIDE [Concomitant]

REACTIONS (2)
  - HAEMORRHAGE [None]
  - HAEMOSTASIS [None]
